FAERS Safety Report 7169041-8 (Version None)
Quarter: 2010Q4

REPORT INFORMATION
  Report Type: 
  Country: None (occurrence: None)
  Receive Date: 20101216
  Receipt Date: 20100121
  Transmission Date: 20110411
  Serious: No
  Sender: FDA-Public Use
  Company Number: US-AMGEN-KDL383996

PATIENT

DRUGS (6)
  1. ENBREL [Suspect]
     Indication: RHEUMATOID ARTHRITIS
     Dosage: 50 MG, QWK
     Route: 058
     Dates: start: 20091202
  2. METHOTREXATE [Concomitant]
     Dosage: 2.5 MG, QWK
     Route: 048
  3. FOLIC ACID [Concomitant]
     Dosage: 1 MG, QD
  4. IBUPROFEN [Concomitant]
     Dosage: 400 MG, UNK
  5. PREDNISONE [Concomitant]
     Dosage: 5 MG, QD
  6. CETIRIZINE HYDROCHLORIDE [Concomitant]
     Dosage: UNK UNK, UNK

REACTIONS (3)
  - DRUG INEFFECTIVE [None]
  - MUSCLE SPASMS [None]
  - SYNOVITIS [None]
